FAERS Safety Report 10464764 (Version 3)
Quarter: 2014Q4

REPORT INFORMATION
  Report Type: Spontaneous
  Country: US (occurrence: US)
  Receive Date: 20140919
  Receipt Date: 20141006
  Transmission Date: 20150528
  Serious: Yes (Hospitalization, Other)
  Sender: FDA-Public Use
  Company Number: US-009507513-1409USA008897

PATIENT
  Sex: Male

DRUGS (1)
  1. TEMODAR [Suspect]
     Active Substance: TEMOZOLOMIDE
     Indication: ANAPLASTIC ASTROCYTOMA
     Dosage: UNK
     Route: 048

REACTIONS (4)
  - Pneumonia [Recovered/Resolved]
  - Wrong technique in drug usage process [Unknown]
  - Gastrostomy [Unknown]
  - Dysphagia [Unknown]
